FAERS Safety Report 12736700 (Version 2)
Quarter: 2016Q3

REPORT INFORMATION
  Report Type: Spontaneous
  Country: JP (occurrence: JP)
  Receive Date: 20160913
  Receipt Date: 20160929
  Transmission Date: 20161109
  Serious: Yes (Hospitalization, Other)
  Sender: FDA-Public Use
  Company Number: PHJP2016JP025732

PATIENT
  Age: 77 Year
  Sex: Male

DRUGS (1)
  1. ZOMETA [Suspect]
     Active Substance: ZOLEDRONIC ACID
     Indication: METASTASES TO BONE
     Route: 041

REACTIONS (4)
  - Fracture [Unknown]
  - Osteosclerosis [Unknown]
  - Metastases to bone [Unknown]
  - Fall [Unknown]
